FAERS Safety Report 10026976 (Version 2)
Quarter: 2014Q1

REPORT INFORMATION
  Report Type: Spontaneous
  Country: US (occurrence: US)
  Receive Date: 20140321
  Receipt Date: 20140321
  Transmission Date: 20141002
  Serious: No
  Sender: FDA-Public Use
  Company Number: US-MYLANLABS-2013S1013147

PATIENT
  Sex: Male

DRUGS (1)
  1. ALBUTEROL SULFATE INHALATION SOLUTION 0.083% [Suspect]
     Indication: ASTHMA
     Dosage: Q6H PRN
     Route: 055

REACTIONS (1)
  - Drug ineffective [Not Recovered/Not Resolved]
